FAERS Safety Report 7744092-0 (Version None)
Quarter: 2011Q3

REPORT INFORMATION
  Report Type: 
  Country: None (occurrence: None)
  Receive Date: 20110831
  Receipt Date: 20110824
  Transmission Date: 20111222
  Serious: Yes (Disabling, Other)
  Sender: FDA-Public Use
  Company Number: 2011SP040202

PATIENT
  Sex: Female

DRUGS (1)
  1. TEMODAL [Suspect]
     Indication: METASTATIC MALIGNANT MELANOMA
     Dates: start: 20110601

REACTIONS (5)
  - NERVOUS SYSTEM DISORDER [None]
  - DISORIENTATION [None]
  - BRADYPHRENIA [None]
  - SELF INJURIOUS BEHAVIOUR [None]
  - DEMENTIA ALZHEIMER'S TYPE [None]
